FAERS Safety Report 12522873 (Version 1)
Quarter: 2016Q3

REPORT INFORMATION
  Report Type: Other
  Country: FR (occurrence: FR)
  Receive Date: 20160701
  Receipt Date: 20160701
  Transmission Date: 20161109
  Serious: Yes (Hospitalization, Other)
  Sender: FDA-Public Use
  Company Number: FR-ENDO PHARMACEUTICALS INC-2016-004108

PATIENT
  Age: 33 Year
  Sex: Female

DRUGS (3)
  1. BACLOFEN TABLETS [Suspect]
     Active Substance: BACLOFEN
     Indication: ALCOHOLISM
     Route: 065
  2. BACLOFEN TABLETS [Suspect]
     Active Substance: BACLOFEN
     Route: 065
  3. LEVOTHYROXINE SODIUM TABLETS [Concomitant]
     Active Substance: LEVOTHYROXINE SODIUM
     Indication: HYPOTHYROIDISM
     Route: 065

REACTIONS (5)
  - Off label use [Unknown]
  - Overdose [Recovered/Resolved]
  - Drug withdrawal syndrome [Recovered/Resolved]
  - Therapy cessation [Recovered/Resolved]
  - Neuroleptic malignant syndrome [Recovered/Resolved]
